FAERS Safety Report 9402003 (Version 1)
Quarter: 2013Q3

REPORT INFORMATION
  Report Type: Spontaneous
  Country: US (occurrence: US)
  Receive Date: 20130716
  Receipt Date: 20130716
  Transmission Date: 20140515
  Serious: Yes (Other)
  Sender: FDA-Public Use
  Company Number: US-PFIZER INC-2010150853

PATIENT
  Age: 62 Year
  Sex: Female
  Weight: 67.57 kg

DRUGS (9)
  1. LYRICA [Suspect]
     Indication: DIABETIC NEUROPATHY
     Dosage: 75 MG, 2X/DAY
     Route: 048
  2. LYRICA [Suspect]
     Indication: PAIN
  3. LYRICA [Suspect]
     Indication: SCIATIC NERVE INJURY
  4. MORPHINE HYDROCHLORIDE [Suspect]
     Indication: DIABETIC NEUROPATHY
     Dosage: 150 MG, 1X/DAY
  5. MORPHINE HYDROCHLORIDE [Suspect]
     Indication: PAIN
  6. MORPHINE HYDROCHLORIDE [Suspect]
     Indication: SCIATIC NERVE INJURY
  7. SUBOXONE [Suspect]
     Dosage: UNK
  8. CYMBALTA [Concomitant]
     Indication: ANTIDEPRESSANT THERAPY
     Dosage: 20 MG, 2X/DAY
     Route: 048
  9. JANUVIA [Concomitant]
     Indication: DIABETES MELLITUS
     Dosage: 100 MG, 1X/DAY
     Route: 048

REACTIONS (6)
  - Drug dependence [Unknown]
  - Sciatica [Recovered/Resolved]
  - Neuropathy peripheral [Recovered/Resolved]
  - Drug ineffective [Unknown]
  - Gait disturbance [Recovered/Resolved]
  - Withdrawal syndrome [Unknown]
